FAERS Safety Report 6900529-8 (Version None)
Quarter: 2010Q3

REPORT INFORMATION
  Report Type: 
  Country: None (occurrence: None)
  Receive Date: 20100803
  Receipt Date: 20100726
  Transmission Date: 20110219
  Serious: Yes (Hospitalization)
  Sender: FDA-Public Use
  Company Number: FR-SANOFI-AVENTIS-2010SA042177

PATIENT
  Age: 33 Year
  Sex: Female

DRUGS (6)
  1. FLAGYL [Suspect]
     Indication: COLITIS
     Route: 048
     Dates: start: 20100507, end: 20100511
  2. OFLOCET [Suspect]
     Indication: PRODUCT USED FOR UNKNOWN INDICATION
     Route: 048
     Dates: start: 20100507, end: 20100511
  3. LOVENOX [Suspect]
     Indication: THROMBOSIS PROPHYLAXIS
     Route: 058
     Dates: start: 20100507, end: 20100514
  4. ATARAX [Suspect]
     Indication: PRODUCT USED FOR UNKNOWN INDICATION
     Route: 048
     Dates: start: 20100507, end: 20100514
  5. SPASFON [Concomitant]
     Indication: COLITIS
     Route: 048
     Dates: start: 20100507
  6. CORTANCYL [Concomitant]
     Route: 065
     Dates: start: 20100509

REACTIONS (1)
  - TRANSAMINASES INCREASED [None]
